FAERS Safety Report 5996141-8 (Version None)
Quarter: 2008Q4

REPORT INFORMATION
  Report Type: 
  Country: None (occurrence: None)
  Receive Date: 20081212
  Receipt Date: 20081013
  Transmission Date: 20090506
  Serious: No
  Sender: FDA-Public Use
  Company Number: US-ABBOTT-08P-163-0481182-00

PATIENT
  Sex: Female

DRUGS (5)
  1. HUMIRA [Suspect]
     Indication: RHEUMATOID ARTHRITIS
     Route: 058
     Dates: start: 20080513
  2. PANTOPRAZOLE SODIUM [Concomitant]
     Indication: GASTRIC DISORDER
     Route: 048
  3. CENTRUM [Concomitant]
     Indication: VITAMIN SUPPLEMENTATION
     Route: 048
  4. CITRACAL + D [Concomitant]
     Indication: VITAMIN SUPPLEMENTATION
     Dosage: 630MG/400IU
     Route: 048
  5. PHENAZOPYRIDINE HCL TAB [Concomitant]
     Indication: CYSTITIS INTERSTITIAL
     Route: 048

REACTIONS (6)
  - ARTHROPOD BITE [None]
  - ASTHENIA [None]
  - BLISTER [None]
  - JOINT SWELLING [None]
  - MOBILITY DECREASED [None]
  - PAIN IN EXTREMITY [None]
